FAERS Safety Report 9280398 (Version 2)
Quarter: 2013Q2

REPORT INFORMATION
  Report Type: Report from Study
  Country: US (occurrence: US)
  Receive Date: 20130509
  Receipt Date: 20130628
  Transmission Date: 20140414
  Serious: Yes (Other)
  Sender: FDA-Public Use
  Company Number: US-NAPPMUNDI-USA-2013-0101869

PATIENT
  Sex: Male
  Weight: 94.33 kg

DRUGS (3)
  1. OXYCONTIN (NDA 22-272) [Suspect]
     Indication: INTERVERTEBRAL DISC PROTRUSION
     Dosage: 40 MG, Q12H
     Route: 048
     Dates: start: 20101223
  2. OXYCONTIN (NDA 22-272) [Suspect]
     Indication: SPINAL OSTEOARTHRITIS
  3. PERCOCET                           /00867901/ [Concomitant]
     Indication: PROCEDURAL PAIN
     Dosage: 5/325 MG, 1-2 TABLETS EVERY 4 HOURS AS NEEDED
     Route: 048
     Dates: start: 20130405, end: 20130410

REACTIONS (1)
  - Carpal tunnel syndrome [Unknown]
